FAERS Safety Report 9177830 (Version 1)
Quarter: 2013Q1

REPORT INFORMATION
  Report Type: Report from Study
  Country: CA (occurrence: CA)
  Receive Date: 20130321
  Receipt Date: 20130321
  Transmission Date: 20140127
  Serious: Yes (Other)
  Sender: FDA-Public Use
  Company Number: CA-JNJFOC-20130308595

PATIENT
  Sex: Female

DRUGS (4)
  1. SIMPONI [Suspect]
     Indication: PSORIATIC ARTHROPATHY
     Route: 058
     Dates: start: 20100213
  2. SALBUTAMOL [Concomitant]
  3. ADVAIR [Concomitant]
  4. WELLBUTRIN [Concomitant]
     Route: 048

REACTIONS (1)
  - Computerised tomogram abnormal [Unknown]
